FAERS Safety Report 20280841 (Version 1)
Quarter: 2022Q1

REPORT INFORMATION
  Report Type: Spontaneous
  Country: IN (occurrence: IN)
  Receive Date: 20220103
  Receipt Date: 20220103
  Transmission Date: 20220423
  Serious: Yes (Hospitalization, Other)
  Sender: FDA-Public Use
  Company Number: IN-NOVARTISPH-NVSC2021IN297020

PATIENT
  Age: 63 Year
  Sex: Female

DRUGS (4)
  1. RIBOCICLIB [Suspect]
     Active Substance: RIBOCICLIB
     Indication: HER2 negative breast cancer
     Dosage: UNK
     Route: 065
     Dates: start: 201908, end: 201912
  2. RIBOCICLIB [Suspect]
     Active Substance: RIBOCICLIB
     Dosage: UNK
     Route: 065
     Dates: start: 202007
  3. LETROZOLE [Concomitant]
     Active Substance: LETROZOLE
     Indication: HER2 negative breast cancer
     Dosage: UNK
     Route: 065
     Dates: start: 201908
  4. ZOLEDRONIC ACID [Concomitant]
     Active Substance: ZOLEDRONIC ACID
     Indication: HER2 negative breast cancer
     Dosage: UNK
     Route: 065
     Dates: start: 201908

REACTIONS (1)
  - Organising pneumonia [Recovering/Resolving]
